FAERS Safety Report 6894452-5 (Version None)
Quarter: 2010Q3

REPORT INFORMATION
  Report Type: 
  Country: None (occurrence: None)
  Receive Date: 20100802
  Receipt Date: 20100722
  Transmission Date: 20110219
  Serious: Yes (Other)
  Sender: FDA-Public Use
  Company Number: FR-JNJFOC-20100707782

PATIENT
  Age: 31 Year
  Sex: Male

DRUGS (8)
  1. REMICADE [Suspect]
     Indication: CROHN'S DISEASE
     Dosage: RECEIVED 3 INFUSIONS THEN WAS LOST TO FOLLOW-UP
     Route: 042
  2. REMICADE [Suspect]
     Dosage: RECEIVED 3 INFUSIONS THEN WAS LOST TO FOLLOW-UP
     Route: 042
  3. REMICADE [Suspect]
     Dosage: RECEIVED 3 INFUSIONS THEN WAS LOST TO FOLLOW-UP
     Route: 042
  4. HYDROCORTISONE [Concomitant]
     Indication: PREMEDICATION
     Route: 042
  5. PENTASA [Concomitant]
     Indication: CROHN'S DISEASE
     Route: 048
  6. IMUREL [Concomitant]
     Indication: CROHN'S DISEASE
  7. ENTOCORT EC [Concomitant]
     Indication: CROHN'S DISEASE
     Route: 048
  8. FOLIC ACID [Concomitant]

REACTIONS (12)
  - BACK PAIN [None]
  - ERYTHEMA [None]
  - HYPERSENSITIVITY [None]
  - HYPOTENSION [None]
  - INFUSION RELATED REACTION [None]
  - MALAISE [None]
  - MUSCLE FATIGUE [None]
  - MYALGIA [None]
  - PARAESTHESIA [None]
  - SUFFOCATION FEELING [None]
  - TACHYCARDIA [None]
  - VOMITING [None]
